FAERS Safety Report 8358460-X (Version None)
Quarter: 2012Q2

REPORT INFORMATION
  Report Type: 
  Country: None (occurrence: None)
  Receive Date: 20120514
  Receipt Date: 20120509
  Transmission Date: 20120825
  Serious: Yes (Hospitalization, Other)
  Sender: FDA-Public Use
  Company Number: PHHY2012DK039463

PATIENT
  Sex: Female

DRUGS (1)
  1. DICLOFENAC SODIUM [Suspect]
     Indication: RHEUMATOID ARTHRITIS
     Dates: start: 20010101

REACTIONS (5)
  - QUALITY OF LIFE DECREASED [None]
  - CORONARY ARTERY THROMBOSIS [None]
  - CORONARY ARTERY STENOSIS [None]
  - DYSPNOEA [None]
  - FATIGUE [None]
